FAERS Safety Report 4960332-5 (Version None)
Quarter: 2006Q2

REPORT INFORMATION
  Report Type: 
  Country: None (occurrence: None)
  Receive Date: 20060403
  Receipt Date: 20051125
  Transmission Date: 20061013
  Serious: Yes (Hospitalization)
  Sender: FDA-Public Use
  Company Number: SE-BRISTOL-MYERS SQUIBB COMPANY-13194444

PATIENT
  Age: 73 Year
  Sex: Male
  Weight: 68 kg

DRUGS (7)
  1. IRBESARTAN [Suspect]
     Indication: HYPERTENSION
     Dosage: TEMPORARILY STOPPED DUE TO EVENT ON 14-NOV-2005 AND RESTARTED 18-NOV-2005
     Dates: start: 20040604
  2. WARFARIN [Suspect]
     Indication: PROPHYLAXIS
     Dosage: DISCONTINUED SEP-2005 VERSUS 17-OCT-2005
     Dates: start: 20040603, end: 20050101
  3. DIGITALIS [Suspect]
     Dates: end: 20051114
  4. RAMIPRIL [Suspect]
     Dates: end: 20051114
  5. BLINDED: PLACEBO [Suspect]
     Indication: HYPERTENSION
     Dates: start: 20040604
  6. BISOPROLOL [Concomitant]
  7. FUROSEMIDE [Concomitant]

REACTIONS (2)
  - RENAL IMPAIRMENT [None]
  - THERAPEUTIC AGENT TOXICITY [None]
